FAERS Safety Report 5021975-6 (Version None)
Quarter: 2006Q2

REPORT INFORMATION
  Report Type: 
  Country: None (occurrence: None)
  Receive Date: 20060609
  Receipt Date: 20060601
  Transmission Date: 20061013
  Serious: Yes (Other)
  Sender: FDA-Public Use
  Company Number: IE-JNJFOC-20060205418

PATIENT
  Sex: Male
  Weight: 89 kg

DRUGS (9)
  1. RISPERDAL [Suspect]
     Route: 048
  2. RISPERDAL [Suspect]
     Route: 048
  3. RISPERDAL [Suspect]
     Indication: DRUG USE FOR UNKNOWN INDICATION
     Route: 048
  4. RISPERDAL CONSTA [Suspect]
     Route: 030
  5. RISPERDAL CONSTA [Suspect]
     Indication: AGGRESSION
     Route: 030
  6. RISPERDAL CONSTA [Suspect]
     Indication: LEARNING DISABILITY
     Route: 030
  7. LARGACTIL [Suspect]
     Route: 065
  8. LARGACTIL [Suspect]
     Indication: DRUG USE FOR UNKNOWN INDICATION
     Route: 065
  9. LANSOPRAZOLE [Concomitant]
     Route: 065

REACTIONS (7)
  - AGITATION [None]
  - DYSPHAGIA [None]
  - EXTRAPYRAMIDAL DISORDER [None]
  - GRIMACING [None]
  - MUSCLE RIGIDITY [None]
  - PARKINSONIAN REST TREMOR [None]
  - TREMOR [None]
